FAERS Safety Report 8266959-X (Version None)
Quarter: 2012Q2

REPORT INFORMATION
  Report Type: 
  Country: None (occurrence: None)
  Receive Date: 20120405
  Receipt Date: 20120405
  Transmission Date: 20120825
  Serious: Yes (Hospitalization)
  Sender: FDA-Public Use
  Company Number: None

PATIENT
  Age: 58 Year
  Sex: Male
  Weight: 86 kg

DRUGS (17)
  1. VICTRELIS [Concomitant]
  2. LOSARTEN [Concomitant]
  3. ISENTRESS [Concomitant]
  4. PEGASYS [Concomitant]
  5. TRAMADOL HCL [Concomitant]
  6. LYRICA [Concomitant]
  7. CLARITIN [Concomitant]
  8. CELEXA [Concomitant]
  9. PROTONIX [Concomitant]
  10. PEGASYS [Suspect]
     Indication: HEPATITIS C
     Dosage: 180MCG WEEKLY SQ
     Route: 058
     Dates: start: 20111124
  11. WELLBUTRIN [Concomitant]
  12. VITAMIN B-12 [Concomitant]
  13. NORVASC [Concomitant]
  14. RIBIVIRIN 200MG TEVA [Suspect]
     Indication: HEPATITIS C
     Dosage: 1000MG DAILY PO
     Route: 048
     Dates: start: 20111124
  15. SERTRALINE HYDROCHLORIDE [Concomitant]
  16. RIBAVIRIN [Concomitant]
  17. METOPROLOL TARTRATE [Concomitant]

REACTIONS (4)
  - NAUSEA [None]
  - UNEVALUABLE EVENT [None]
  - FATIGUE [None]
  - HEADACHE [None]
